FAERS Safety Report 16660595 (Version 9)
Quarter: 2020Q4

REPORT INFORMATION
  Report Type: Report from Study
  Country: JP (occurrence: JP)
  Receive Date: 20190802
  Receipt Date: 20201224
  Transmission Date: 20210113
  Serious: Yes (Other)
  Sender: FDA-Public Use
  Company Number: JP-JNJFOC-20190741629

PATIENT
  Age: 24 Year
  Sex: Female
  Weight: 55 kg

DRUGS (34)
  1. CYCLOSERINE. [Suspect]
     Active Substance: CYCLOSERINE
     Indication: PULMONARY TUBERCULOSIS
     Route: 048
     Dates: start: 20190529
  2. METOCLOPRAMIDE. [Suspect]
     Active Substance: METOCLOPRAMIDE
     Indication: NAUSEA
     Route: 048
     Dates: start: 20181004, end: 20181012
  3. METOCLOPRAMIDE. [Suspect]
     Active Substance: METOCLOPRAMIDE
     Indication: NAUSEA
     Route: 048
     Dates: start: 20181013, end: 20181217
  4. TEPRENONE [Concomitant]
     Active Substance: TEPRENONE
     Indication: NAUSEA
     Route: 048
     Dates: start: 20181218, end: 20190218
  5. CYMBALTA [Concomitant]
     Active Substance: DULOXETINE HYDROCHLORIDE
     Indication: NEUROPATHY PERIPHERAL
     Route: 048
     Dates: start: 20190205
  6. SIRTURO [Suspect]
     Active Substance: BEDAQUILINE FUMARATE
     Indication: PULMONARY TUBERCULOSIS
     Route: 048
     Dates: start: 20181003, end: 20181017
  7. SIRTURO [Suspect]
     Active Substance: BEDAQUILINE FUMARATE
     Route: 048
     Dates: start: 20181018, end: 20190129
  8. LOXOPROFEN [Suspect]
     Active Substance: LOXOPROFEN
     Indication: NEUROPATHY PERIPHERAL
     Route: 048
     Dates: start: 20180929, end: 20180930
  9. SIRTURO [Suspect]
     Active Substance: BEDAQUILINE FUMARATE
     Route: 048
     Dates: start: 20191003
  10. KANAMYCIN SULFATE [Suspect]
     Active Substance: KANAMYCIN SULFATE
     Indication: PULMONARY TUBERCULOSIS
     Route: 030
     Dates: start: 20180920, end: 20181106
  11. KANAMYCIN SULFATE [Suspect]
     Active Substance: KANAMYCIN SULFATE
     Indication: PULMONARY TUBERCULOSIS
     Route: 030
     Dates: start: 20181108, end: 20190129
  12. LYRICA [Concomitant]
     Active Substance: PREGABALIN
     Indication: NEUROPATHY PERIPHERAL
     Route: 048
     Dates: start: 20190108, end: 20190114
  13. DELAMANID [Suspect]
     Active Substance: DELAMANID
     Indication: PULMONARY TUBERCULOSIS
     Route: 048
     Dates: start: 20180928, end: 20190129
  14. LANSOPRAZOLE. [Suspect]
     Active Substance: LANSOPRAZOLE
     Indication: NAUSEA
     Route: 048
     Dates: start: 20181011, end: 20181217
  15. LOXOPROFEN [Suspect]
     Active Substance: LOXOPROFEN
     Indication: DYSMENORRHOEA
     Route: 048
     Dates: start: 20180929, end: 20180930
  16. ETHIONAMIDE [Suspect]
     Active Substance: ETHIONAMIDE
     Indication: PULMONARY TUBERCULOSIS
     Route: 048
     Dates: start: 20180920, end: 20181113
  17. CYCLOSERINE. [Suspect]
     Active Substance: CYCLOSERINE
     Indication: PULMONARY TUBERCULOSIS
     Route: 048
     Dates: start: 20180920, end: 20190129
  18. HYDROCORTISONE BUTYRATE. [Suspect]
     Active Substance: HYDROCORTISONE BUTYRATE
     Indication: MILIARIA
     Dosage: UNKNOWN
     Route: 061
     Dates: start: 20181016, end: 20181016
  19. METOCLOPRAMIDE. [Suspect]
     Active Substance: METOCLOPRAMIDE
     Indication: NAUSEA
     Route: 048
     Dates: start: 20181218, end: 20190218
  20. CYMBALTA [Concomitant]
     Active Substance: DULOXETINE HYDROCHLORIDE
     Indication: NEUROPATHY PERIPHERAL
     Route: 048
     Dates: start: 20190130, end: 20190204
  21. LAMPREN [Concomitant]
     Active Substance: CLOFAZIMINE
     Indication: PULMONARY TUBERCULOSIS
     Route: 048
     Dates: start: 20191010
  22. LOXOPROFEN [Suspect]
     Active Substance: LOXOPROFEN
     Indication: NEUROPATHY PERIPHERAL
     Route: 048
     Dates: start: 20190205
  23. PYRAZINAMIDE. [Concomitant]
     Active Substance: PYRAZINAMIDE
     Indication: PULMONARY TUBERCULOSIS
     Dosage: DOSAGE FORM: UNSPECIFIED,UNKNOWN
     Route: 048
     Dates: start: 20180529, end: 20180710
  24. PYRAZINAMIDE. [Concomitant]
     Active Substance: PYRAZINAMIDE
     Indication: PULMONARY TUBERCULOSIS
     Route: 048
     Dates: start: 20180920, end: 20181106
  25. LYRICA [Concomitant]
     Active Substance: PREGABALIN
     Indication: NEUROPATHY PERIPHERAL
     Route: 048
     Dates: start: 20190115, end: 20190129
  26. PROTHIONAMIDE [Concomitant]
     Active Substance: PROTIONAMIDE
     Indication: PULMONARY TUBERCULOSIS
     Dosage: UNKNOWN
     Route: 048
     Dates: start: 20180920
  27. LINEZOLID. [Suspect]
     Active Substance: LINEZOLID
     Indication: PULMONARY TUBERCULOSIS
     Route: 048
     Dates: start: 20180920, end: 20190108
  28. LANSOPRAZOLE. [Suspect]
     Active Substance: LANSOPRAZOLE
     Indication: DYSPEPSIA
     Route: 048
     Dates: start: 20180929, end: 2018
  29. LOXOPROFEN [Suspect]
     Active Substance: LOXOPROFEN
     Indication: DYSMENORRHOEA
     Route: 048
     Dates: start: 20190205
  30. VITAMEDIN [BENFOTIAMINE;CYANOCOBALAMIN;PYRIDOXINE HYDROCHLORIDE] [Concomitant]
     Indication: NEUROPATHY PERIPHERAL
     Dosage: DOSAGE FORM: UNSPECIFIED ,, UNKNOWN
     Route: 048
  31. BENFOTIAMINE [Concomitant]
     Active Substance: BENFOTIAMINE
     Indication: NEUROPATHY PERIPHERAL
     Route: 048
     Dates: start: 20190115
  32. NIPPAS CALCIUM [Concomitant]
     Active Substance: AMINOSALICYLATE CALCIUM
     Indication: PULMONARY TUBERCULOSIS
     Route: 048
     Dates: start: 20190725
  33. MOTILIUM [Suspect]
     Active Substance: DOMPERIDONE
     Indication: NAUSEA
     Route: 048
     Dates: start: 20181004, end: 20181004
  34. MUCOSTA [Suspect]
     Active Substance: REBAMIPIDE
     Indication: DYSMENORRHOEA
     Route: 048
     Dates: start: 20180929, end: 20180930

REACTIONS (6)
  - Nausea [Recovered/Resolved]
  - Neuropathy peripheral [Not Recovered/Not Resolved]
  - Gamma-glutamyltransferase increased [Recovered/Resolved]
  - Anaemia [Recovered/Resolved]
  - Dyspepsia [Recovered/Resolved]
  - Tinnitus [Not Recovered/Not Resolved]

NARRATIVE: CASE EVENT DATE: 20181003
